FAERS Safety Report 10151442 (Version 1)
Quarter: 2014Q2

REPORT INFORMATION
  Report Type: Spontaneous
  Country: FR (occurrence: FR)
  Receive Date: 20140504
  Receipt Date: 20140504
  Transmission Date: 20141212
  Serious: Yes (Hospitalization)
  Sender: FDA-Public Use
  Company Number: FR-BRISTOL-MYERS SQUIBB COMPANY-20671327

PATIENT
  Age: 89 Year
  Sex: Male

DRUGS (13)
  1. DAFALGAN CODEINE TABS [Suspect]
     Route: 048
  2. PRAVASTATIN SODIUM [Suspect]
     Route: 048
  3. AMOXICILLIN + CLAVULANIC ACID [Suspect]
     Dosage: BIOGARAN ORALLY FOR A DERMO-HYPODERMITIS
     Route: 048
     Dates: start: 20130513
  4. NICORANDIL [Suspect]
     Indication: CORONARY ARTERY INSUFFICIENCY
     Route: 048
     Dates: end: 20130523
  5. KARDEGIC [Suspect]
     Route: 048
  6. ACEBUTOLOL HCL [Suspect]
     Route: 048
  7. PREVISCAN [Suspect]
     Route: 048
     Dates: end: 20130525
  8. PERINDOPRIL [Suspect]
     Route: 048
  9. SERESTA [Suspect]
     Route: 048
  10. DIAFUSOR [Suspect]
     Indication: CORONARY ARTERY INSUFFICIENCY
     Route: 062
  11. NOVOMIX [Suspect]
     Indication: DIABETES MELLITUS
     Route: 058
  12. NOVORAPID [Suspect]
     Indication: DIABETES MELLITUS
     Route: 058
  13. INDAPAMIDE [Suspect]
     Route: 048

REACTIONS (1)
  - Oesophagitis ulcerative [Recovering/Resolving]
